FAERS Safety Report 21851161 (Version 1)
Quarter: 2023Q1

REPORT INFORMATION
  Report Type: Spontaneous
  Country: CA (occurrence: CA)
  Receive Date: 20230112
  Receipt Date: 20230112
  Transmission Date: 20230417
  Serious: Yes (Death)
  Sender: FDA-Public Use
  Company Number: CA-TEVA-2023-CA-2844655

PATIENT
  Age: 76 Year
  Sex: Female

DRUGS (9)
  1. SILDENAFIL CITRATE [Suspect]
     Active Substance: SILDENAFIL CITRATE
     Indication: Pulmonary hypertension
     Route: 048
  2. UPTRAVI [Suspect]
     Active Substance: SELEXIPAG
     Indication: Product used for unknown indication
     Dosage: 1600 MICROGRAM DAILY;
     Route: 065
  3. UPTRAVI [Suspect]
     Active Substance: SELEXIPAG
     Route: 065
  4. ABILIFY [Concomitant]
     Active Substance: ARIPIPRAZOLE
     Indication: Product used for unknown indication
  5. ACETAMINOPHEN\CAFFEINE\CODEINE PHOSPHATE [Concomitant]
     Active Substance: ACETAMINOPHEN\CAFFEINE\CODEINE PHOSPHATE
     Indication: Product used for unknown indication
  6. ESOMEPRAZOLE SODIUM [Concomitant]
     Active Substance: ESOMEPRAZOLE SODIUM
     Indication: Product used for unknown indication
  7. PROLIA [Concomitant]
     Active Substance: DENOSUMAB
     Indication: Product used for unknown indication
     Dosage: PRE-FILLED SYRINGE. PRESERVATIVE-FREE.
  8. VENLAFAXINE HYDROCHLORIDE [Concomitant]
     Active Substance: VENLAFAXINE HYDROCHLORIDE
     Indication: Product used for unknown indication
  9. AMBRISENTAN [Concomitant]
     Active Substance: AMBRISENTAN
     Indication: Product used for unknown indication

REACTIONS (24)
  - Abdominal discomfort [Fatal]
  - Asthenia [Fatal]
  - Abdominal discomfort [Fatal]
  - Back pain [Fatal]
  - Bowel movement irregularity [Fatal]
  - Chills [Fatal]
  - Condition aggravated [Fatal]
  - Cough [Fatal]
  - Death [Fatal]
  - Dehydration [Fatal]
  - Diarrhoea [Fatal]
  - Dysphonia [Fatal]
  - Dyspnoea [Fatal]
  - Fatigue [Fatal]
  - Headache [Fatal]
  - Malaise [Fatal]
  - Mucous stools [Fatal]
  - Muscular weakness [Fatal]
  - Myalgia [Fatal]
  - Nasal congestion [Fatal]
  - Pain in jaw [Fatal]
  - Temperature intolerance [Fatal]
  - Wheezing [Fatal]
  - Intentional product misuse [Fatal]
